FAERS Safety Report 13725200 (Version 1)
Quarter: 2017Q3

REPORT INFORMATION
  Report Type: Spontaneous
  Country: US (occurrence: US)
  Receive Date: 20170706
  Receipt Date: 20170706
  Transmission Date: 20171127
  Serious: Yes (Other)
  Sender: FDA-Public Use
  Company Number: US-TEVA-782554USA

PATIENT
  Sex: Female

DRUGS (1)
  1. QUETIAPINE FUMARATE. [Suspect]
     Active Substance: QUETIAPINE FUMARATE
     Dosage: 2 TABLETS OF 100MG EACH
     Route: 065

REACTIONS (5)
  - Gait inability [Unknown]
  - Heart rate increased [Unknown]
  - Acute myocardial infarction [Unknown]
  - Dysarthria [Unknown]
  - Troponin increased [Unknown]
